FAERS Safety Report 24463321 (Version 1)
Quarter: 2024Q4

REPORT INFORMATION
  Report Type: Report from Study
  Country: US (occurrence: US)
  Receive Date: 20241018
  Receipt Date: 20241018
  Transmission Date: 20250115
  Serious: No
  Sender: ROCHE
  Company Number: US-ROCHE-3304402

PATIENT
  Age: 48 Year
  Sex: Female
  Weight: 168.0 kg

DRUGS (3)
  1. XOLAIR [Suspect]
     Active Substance: OMALIZUMAB
     Indication: Idiopathic urticaria
     Dosage: ANTICIPATED DATE OF TREATMENT: 12/MAY/2021
     Route: 058
     Dates: start: 2021, end: 2022
  2. XOLAIR [Suspect]
     Active Substance: OMALIZUMAB
     Indication: Urticaria chronic
     Route: 058
     Dates: start: 2022, end: 2022
  3. XOLAIR [Suspect]
     Active Substance: OMALIZUMAB
     Dosage: EACH ADMINISTRATION GIVES THREE INJECTIONS
     Route: 058
     Dates: start: 2022

REACTIONS (2)
  - Off label use [Unknown]
  - Swelling [Recovered/Resolved]

NARRATIVE: CASE EVENT DATE: 20220101
